FAERS Safety Report 14779133 (Version 1)
Quarter: 2018Q2

REPORT INFORMATION
  Report Type: Spontaneous
  Country: GB (occurrence: GB)
  Receive Date: 20180419
  Receipt Date: 20180419
  Transmission Date: 20180711
  Serious: Yes (Hospitalization)
  Sender: FDA-Public Use
  Company Number: GB-B.I. PHARMACEUTICALS,INC./RIDGEFIELD-2018-12-001020

PATIENT
  Sex: Male

DRUGS (2)
  1. SIFROL [Suspect]
     Active Substance: PRAMIPEXOLE
     Indication: RESTLESS LEGS SYNDROME
     Dosage: AT NIGHT
     Route: 065
     Dates: start: 2003
  2. SIFROL [Suspect]
     Active Substance: PRAMIPEXOLE
     Dosage: DOSE WAS INCREASED TO 2 TABLETS PER NIGHT
     Route: 065
     Dates: start: 2003

REACTIONS (9)
  - Chills [Unknown]
  - Drug ineffective [Unknown]
  - Condition aggravated [Unknown]
  - Palpitations [Unknown]
  - Fatigue [Unknown]
  - Restlessness [Unknown]
  - Hyperhidrosis [Unknown]
  - Anxiety [Unknown]
  - Withdrawal syndrome [Unknown]
